FAERS Safety Report 21355989 (Version 2)
Quarter: 2022Q4

REPORT INFORMATION
  Report Type: Report from Study
  Country: IT (occurrence: IT)
  Receive Date: 20220920
  Receipt Date: 20221028
  Transmission Date: 20230113
  Serious: Yes (Hospitalization)
  Sender: FDA-Public Use
  Company Number: None

PATIENT
  Age: 92 Year
  Sex: Male

DRUGS (8)
  1. MEDROL [Interacting]
     Active Substance: METHYLPREDNISOLONE
     Indication: COVID-19
     Dosage: 2 DF, DAILY
     Route: 048
     Dates: start: 20220702, end: 20220722
  2. MEDROL [Interacting]
     Active Substance: METHYLPREDNISOLONE
     Dosage: 16 MG
  3. PRADAXA [Interacting]
     Active Substance: DABIGATRAN ETEXILATE MESYLATE
     Indication: Atrial fibrillation
     Dosage: 220 MG (2 DF), DAILY
     Route: 048
  4. IBUPROFEN [Interacting]
     Active Substance: IBUPROFEN
     Indication: COVID-19
     Dosage: 1200 MG (600MG 1CPX2 ), DAILY
     Route: 048
     Dates: start: 20220713, end: 20220719
  5. PANTOPRAZOLE SODIUM [Concomitant]
     Active Substance: PANTOPRAZOLE SODIUM
  6. ELOPRAM [CITALOPRAM HYDROCHLORIDE] [Concomitant]
  7. LASIX [Concomitant]
     Active Substance: FUROSEMIDE
  8. ISOPTIN [Concomitant]
     Active Substance: VERAPAMIL HYDROCHLORIDE

REACTIONS (4)
  - Melaena [Recovering/Resolving]
  - Anaemia [Recovering/Resolving]
  - Drug interaction [Recovering/Resolving]
  - Off label use [Unknown]

NARRATIVE: CASE EVENT DATE: 20220720
